FAERS Safety Report 17455632 (Version 1)
Quarter: 2020Q1

REPORT INFORMATION
  Report Type: Spontaneous
  Country: US (occurrence: US)
  Receive Date: 20200225
  Receipt Date: 20200225
  Transmission Date: 20200409
  Serious: No
  Sender: FDA-Public Use
  Company Number: None

PATIENT
  Age: 31 Year
  Sex: Female
  Weight: 41.4 kg

DRUGS (1)
  1. UBRELVY [Suspect]
     Active Substance: UBROGEPANT
     Indication: MIGRAINE
     Dosage: ?          QUANTITY:1 TABLET(S);?
     Route: 048

REACTIONS (8)
  - Limb discomfort [None]
  - Migraine [None]
  - Somnolence [None]
  - Anxiety [None]
  - Restlessness [None]
  - Medication overuse headache [None]
  - Abnormal dreams [None]
  - Tinnitus [None]

NARRATIVE: CASE EVENT DATE: 20200223
